FAERS Safety Report 12265491 (Version 1)
Quarter: 2016Q2

REPORT INFORMATION
  Report Type: Spontaneous
  Country: US (occurrence: US)
  Receive Date: 20160413
  Receipt Date: 20160413
  Transmission Date: 20160815
  Serious: No
  Sender: FDA-Public Use
  Company Number: US-BAYER-2016-066486

PATIENT
  Age: 97 Year
  Sex: Female
  Weight: 52.15 kg

DRUGS (2)
  1. MIRALAX [Suspect]
     Active Substance: POLYETHYLENE GLYCOL 3350
     Indication: CONSTIPATION
     Dosage: 1 DF, QD
     Route: 048
     Dates: start: 2015
  2. METOPROLOL. [Concomitant]
     Active Substance: METOPROLOL

REACTIONS (3)
  - Incorrect dose administered [None]
  - Circumstance or information capable of leading to medication error [None]
  - Product use issue [None]

NARRATIVE: CASE EVENT DATE: 2015
